FAERS Safety Report 15147511 (Version 2)
Quarter: 2018Q3

REPORT INFORMATION
  Report Type: Spontaneous
  Country: TR (occurrence: TR)
  Receive Date: 20180716
  Receipt Date: 20180801
  Transmission Date: 20181010
  Serious: Yes (Other)
  Sender: FDA-Public Use
  Company Number: TR-ROCHE-2152529

PATIENT
  Age: 61 Year
  Sex: Female

DRUGS (2)
  1. PACLITAXEL. [Concomitant]
     Active Substance: PACLITAXEL
     Route: 065
  2. TRASTUZUMAB. [Suspect]
     Active Substance: TRASTUZUMAB
     Indication: BREAST CANCER
     Route: 065

REACTIONS (2)
  - Ventricular arrhythmia [Unknown]
  - Extrasystoles [Unknown]
